FAERS Safety Report 5170651-8 (Version None)
Quarter: 2006Q4

REPORT INFORMATION
  Report Type: 
  Country: None (occurrence: None)
  Receive Date: 20061205
  Receipt Date: 20061117
  Transmission Date: 20070319
  Serious: Yes (Hospitalization)
  Sender: FDA-Public Use
  Company Number: 8020401

PATIENT
  Age: 1 Month

DRUGS (1)
  1. KEPPRA [Suspect]
     Dosage: TRP

REACTIONS (4)
  - DRUG EXPOSURE DURING PREGNANCY [None]
  - GROWTH RETARDATION [None]
  - PREGNANCY [None]
  - PREMATURE BABY [None]
